FAERS Safety Report 9792007 (Version 3)
Quarter: 2014Q1

REPORT INFORMATION
  Report Type: Spontaneous
  Country: ES (occurrence: ES)
  Receive Date: 20140102
  Receipt Date: 20140203
  Transmission Date: 20141002
  Serious: Yes (Other)
  Sender: FDA-Public Use
  Company Number: ES-PFIZER INC-2013308029

PATIENT
  Age: 75 Year
  Sex: Female

DRUGS (3)
  1. LYRICA [Suspect]
     Indication: NERVOUS SYSTEM DISORDER
     Dosage: 75 MG, DAILY
     Dates: start: 201310, end: 201310
  2. LYRICA [Suspect]
     Indication: PARAESTHESIA
     Dosage: 450 MG, DAILY
     Dates: start: 201310, end: 201311
  3. LYRICA [Suspect]
     Dosage: 225 MG, DAILY
     Dates: start: 201311

REACTIONS (3)
  - Off label use [Unknown]
  - Gingival abscess [Not Recovered/Not Resolved]
  - Gingival bleeding [Not Recovered/Not Resolved]
